FAERS Safety Report 8418133-1 (Version None)
Quarter: 2012Q2

REPORT INFORMATION
  Report Type: 
  Country: None (occurrence: None)
  Receive Date: 20120604
  Receipt Date: 20120604
  Transmission Date: 20120825
  Serious: Yes (Disabling)
  Sender: FDA-Public Use
  Company Number: None

PATIENT
  Age: 43 Year
  Sex: Male
  Weight: 102.0593 kg

DRUGS (1)
  1. LEVAQUIN [Suspect]
     Indication: PROSTATE INFECTION
     Dates: start: 20110210, end: 20110225

REACTIONS (11)
  - FATIGUE [None]
  - INSOMNIA [None]
  - DRY EYE [None]
  - ERECTILE DYSFUNCTION [None]
  - DEPRESSION [None]
  - MALAISE [None]
  - BEDRIDDEN [None]
  - ANXIETY [None]
  - PAIN [None]
  - ARTHRALGIA [None]
  - FIBROMYALGIA [None]
